FAERS Safety Report 19113473 (Version 1)
Quarter: 2021Q2

REPORT INFORMATION
  Report Type: Report from Study
  Country: IN (occurrence: IN)
  Receive Date: 20210408
  Receipt Date: 20210408
  Transmission Date: 20210717
  Serious: Yes (Death)
  Sender: FDA-Public Use
  Company Number: IN-ASTRAZENECA-2021A281004

PATIENT
  Age: 49 Year
  Sex: Female

DRUGS (1)
  1. IMFINZI [Suspect]
     Active Substance: DURVALUMAB
     Indication: LUNG NEOPLASM MALIGNANT
     Dosage: UNKNOWN DOSE AND FREQUENCY
     Route: 042
     Dates: start: 20200612, end: 20210404

REACTIONS (1)
  - Death [Fatal]

NARRATIVE: CASE EVENT DATE: 20210404
